FAERS Safety Report 10396046 (Version 1)
Quarter: 2014Q1

REPORT INFORMATION
  Report Type: Spontaneous
  Country: US (occurrence: None)
  Receive Date: 20130107
  Receipt Date: 20130107
  Transmission Date: 20141002
  Serious: No
  Sender: FDA-Public Use
  Company Number: PHEH2012US001059

PATIENT
  Age: 52 Year
  Sex: Female
  Weight: 61.2 kg

DRUGS (16)
  1. GILENYA (FTY) CAPSULE, 0.5MG [Suspect]
     Indication: RELAPSING-REMITTING MULTIPLE SCLEROSIS
     Route: 048
     Dates: start: 201011, end: 201103
  2. TOPAMAX (TOPIRAMATE) [Concomitant]
  3. ZOLOFT (SERTRALINE HYDROCHLORIDE) [Concomitant]
  4. NORVASC (AMLODIPINE BESILATE) [Concomitant]
  5. BUSPAR (BUSPIRONE HYDROCHLORIDE) [Concomitant]
  6. TIZANIDINE (TIZANIDINE) [Concomitant]
  7. HYDROCHLOROTHIAZID (HYDROCHLOROTHIAZIDE) [Concomitant]
  8. CRESTOR (ROSUVASTATIN CALCIUM) [Concomitant]
  9. PLAVIX (CLOPIDOGREL SULFATE) [Concomitant]
  10. VIIBRYD (VILAZODONE HYDROCHLORIDE) [Concomitant]
  11. CELEXA (CITALOPRAM HYDROBROMIDE) [Concomitant]
  12. VITAMIN D (ERGOCALCIFEROL) [Concomitant]
  13. MULTIVITAMIN (VITAMINS NOS) [Concomitant]
  14. CORTISONE (CORTISONE) [Concomitant]
  15. NUVIGIL (ARMODAFINIL) [Concomitant]
  16. NATURE-THROI [Concomitant]

REACTIONS (4)
  - Rash [None]
  - Rash pruritic [None]
  - Alopecia [None]
  - Generalised erythema [None]
